FAERS Safety Report 7564889-X (Version None)
Quarter: 2011Q2

REPORT INFORMATION
  Report Type: 
  Country: None (occurrence: None)
  Receive Date: 20110622
  Receipt Date: 20110223
  Transmission Date: 20111010
  Serious: Yes (Other)
  Sender: FDA-Public Use
  Company Number: US-MYLANLABS-2011S1002201

PATIENT
  Age: 49 Year
  Sex: Female
  Weight: 122.93 kg

DRUGS (14)
  1. CLOZAPINE [Suspect]
     Indication: SCHIZOPHRENIA
     Route: 048
     Dates: start: 20101104, end: 20110118
  2. SULFAMETHOXAZOLE AND TRIMETHOPRIM [Suspect]
     Indication: SKIN INFECTION
     Dates: start: 20110107, end: 20110117
  3. CLONAZEPAM [Concomitant]
  4. DIVALPROEX SODIUM [Concomitant]
  5. GABAPENTIN [Concomitant]
  6. COLACE [Concomitant]
  7. EFFEXOR [Concomitant]
     Dates: end: 20110203
  8. CLOZAPINE [Suspect]
     Route: 048
     Dates: start: 20110126
  9. CLOZAPINE [Suspect]
     Route: 048
     Dates: start: 20110126
  10. IBUPROFEN [Concomitant]
     Indication: ARTHRALGIA
  11. CLOZAPINE [Suspect]
     Route: 048
     Dates: start: 20101104, end: 20110118
  12. AZITHROMYCIN [Suspect]
     Indication: UPPER RESPIRATORY TRACT INFECTION
     Route: 048
     Dates: start: 20110104, end: 20110104
  13. AZITHROMYCIN [Suspect]
     Route: 048
     Dates: start: 20110105, end: 20110108
  14. EFFEXOR [Concomitant]
     Dates: start: 20110204

REACTIONS (1)
  - GRANULOCYTOPENIA [None]
